FAERS Safety Report 18589647 (Version 1)
Quarter: 2020Q4

REPORT INFORMATION
  Report Type: Spontaneous
  Country: FR (occurrence: FR)
  Receive Date: 20201208
  Receipt Date: 20201208
  Transmission Date: 20210114
  Serious: Yes (Other)
  Sender: FDA-Public Use
  Company Number: FR-TEVA-2020-FR-1855385

PATIENT
  Age: 66 Year
  Sex: Male

DRUGS (4)
  1. METRONIDAZOLE. [Suspect]
     Active Substance: METRONIDAZOLE
     Indication: PEPTIC ULCER HELICOBACTER
     Dosage: 2 GRAM
     Route: 048
     Dates: start: 20201112, end: 20201114
  2. AMOXICILLINE [Suspect]
     Active Substance: AMOXICILLIN
     Indication: PEPTIC ULCER HELICOBACTER
     Dosage: 4 GRAM
     Route: 048
     Dates: start: 20201112, end: 20201114
  3. CLARITHROMYCINE [Suspect]
     Active Substance: CLARITHROMYCIN
     Indication: PEPTIC ULCER HELICOBACTER
     Dosage: 2 GRAM
     Route: 048
     Dates: start: 20201112, end: 20201114
  4. PANTOPRAZOLE [Suspect]
     Active Substance: PANTOPRAZOLE
     Indication: PEPTIC ULCER HELICOBACTER
     Dosage: 80MG
     Route: 048
     Dates: start: 20201112, end: 20201114

REACTIONS (4)
  - Vertigo [Recovered/Resolved]
  - Diarrhoea [Recovered/Resolved]
  - Medication error [Recovered/Resolved]
  - Incorrect dose administered [Recovered/Resolved]

NARRATIVE: CASE EVENT DATE: 20201112
